FAERS Safety Report 6198216-X (Version None)
Quarter: 2009Q2

REPORT INFORMATION
  Report Type: 
  Country: None (occurrence: None)
  Receive Date: 20090521
  Receipt Date: 20090507
  Transmission Date: 20091009
  Serious: Yes (Other)
  Sender: FDA-Public Use
  Company Number: CA-GENENTECH-283208

PATIENT
  Age: 16 Year
  Sex: Female

DRUGS (4)
  1. MABTHERA [Suspect]
     Indication: SYSTEMIC LUPUS ERYTHEMATOSUS
     Dosage: 375 MG/M2, 1/WEEK
     Route: 065
  2. ACETAMINOPHEN [Suspect]
     Indication: INFUSION RELATED REACTION
     Route: 065
  3. DIPHENHYDRAMINE HCL [Suspect]
     Indication: INFUSION RELATED REACTION
     Route: 065
  4. HYDROCORTISONE [Suspect]
     Indication: INFUSION RELATED REACTION
     Route: 065

REACTIONS (1)
  - NEUROPSYCHIATRIC LUPUS [None]
